FAERS Safety Report 14708467 (Version 5)
Quarter: 2019Q4

REPORT INFORMATION
  Report Type: Spontaneous
  Country: PL (occurrence: PL)
  Receive Date: 20180403
  Receipt Date: 20191014
  Transmission Date: 20200122
  Serious: Yes (Other)
  Sender: FDA-Public Use
  Company Number: PL-SA-2018SA049062

PATIENT
  Age: 57 Year
  Sex: Male
  Weight: 86 kg

DRUGS (19)
  1. ZOLPIDEM TARTRATE. [Interacting]
     Active Substance: ZOLPIDEM TARTRATE
     Indication: SLEEP DISORDER
  2. DIAZEPAM. [Interacting]
     Active Substance: DIAZEPAM
     Indication: INITIAL INSOMNIA
     Dosage: 10 MG,QD AT HS
     Route: 065
  3. SIMVASTATIN. [Concomitant]
     Active Substance: SIMVASTATIN
  4. FLUOXETINE HYDROCHLORIDE. [Interacting]
     Active Substance: FLUOXETINE HYDROCHLORIDE
     Indication: OFF LABEL USE
  5. MIANSERINE [Interacting]
     Active Substance: MIANSERIN HYDROCHLORIDE
     Indication: NIGHTMARE
  6. METFORMIN [Concomitant]
     Active Substance: METFORMIN HYDROCHLORIDE
     Indication: INSOMNIA
  7. TRAZODONE [Concomitant]
     Active Substance: TRAZODONE HYDROCHLORIDE
     Indication: PRODUCT USED FOR UNKNOWN INDICATION
  8. FLUOXETINE HYDROCHLORIDE. [Interacting]
     Active Substance: FLUOXETINE HYDROCHLORIDE
     Indication: DIABETES MELLITUS
  9. MIANSERINE [Interacting]
     Active Substance: MIANSERIN HYDROCHLORIDE
     Indication: INSOMNIA
     Dosage: 20 MG,QD USED HALF HOUR BEFORE GOING SLEEP
     Route: 065
  10. ZOFENIL [Concomitant]
     Active Substance: ZOFENOPRIL
  11. ZOLPIDEM TARTRATE. [Interacting]
     Active Substance: ZOLPIDEM TARTRATE
     Indication: FIBROMYALGIA
  12. FLUOXETINE HYDROCHLORIDE. [Interacting]
     Active Substance: FLUOXETINE HYDROCHLORIDE
     Indication: FIBROMYALGIA
     Dosage: 40 MG,QD
     Route: 065
     Dates: start: 20171103, end: 20171122
  13. ZOLPIDEM TARTRATE. [Suspect]
     Active Substance: ZOLPIDEM TARTRATE
     Indication: INSOMNIA
     Dosage: 10 MG,QD
     Route: 065
     Dates: start: 20171122, end: 20171124
  14. METFORMIN [Concomitant]
     Active Substance: METFORMIN HYDROCHLORIDE
     Indication: TYPE 2 DIABETES MELLITUS
  15. ZOLPIDEM TARTRATE. [Interacting]
     Active Substance: ZOLPIDEM TARTRATE
     Indication: DIABETES MELLITUS
  16. DIAZEPAM. [Interacting]
     Active Substance: DIAZEPAM
     Indication: NIGHTMARE
  17. DULOXETINE. [Concomitant]
     Active Substance: DULOXETINE
     Indication: PAIN MANAGEMENT
  18. BISOCARD [Concomitant]
     Active Substance: BISOPROLOL
  19. PARACETAMOL [Concomitant]
     Active Substance: ACETAMINOPHEN

REACTIONS (13)
  - Blood glucose fluctuation [Recovered/Resolved]
  - Drug ineffective [Unknown]
  - Initial insomnia [Recovered/Resolved]
  - Abnormal dreams [Recovered/Resolved]
  - Somnolence [Recovering/Resolving]
  - Off label use [Unknown]
  - Poor quality sleep [Recovered/Resolved]
  - Sleep disorder [Recovered/Resolved]
  - Dry mouth [Recovering/Resolving]
  - Drug interaction [Unknown]
  - Nightmare [Recovered/Resolved]
  - Impaired self-care [Unknown]
  - Somnolence [Recovered/Resolved]
